FAERS Safety Report 16770652 (Version 9)
Quarter: 2020Q1

REPORT INFORMATION
  Report Type: Report from Study
  Country: CA (occurrence: CA)
  Receive Date: 20190904
  Receipt Date: 20200226
  Transmission Date: 20200409
  Serious: Yes (Hospitalization, Other)
  Sender: FDA-Public Use
  Company Number: PHHY2016CA187404

PATIENT
  Age: 63 Year
  Sex: Female

DRUGS (7)
  1. SANDOSTATIN [Suspect]
     Active Substance: OCTREOTIDE ACETATE
     Indication: ACROMEGALY
     Dosage: 100 UG, ONCE/SINGLE (TEST DOSE)
     Route: 058
     Dates: start: 20160116, end: 20160116
  2. COVERSYL [Suspect]
     Active Substance: PERINDOPRIL
     Indication: HYPERTENSION
     Dosage: 1 DF, BID
     Route: 048
     Dates: start: 2018
  3. CICLOPIROX. [Concomitant]
     Active Substance: CICLOPIROX
     Indication: FUNGAL INFECTION
     Dosage: UNK
     Route: 065
     Dates: end: 202001
  4. COVERSYL [Suspect]
     Active Substance: PERINDOPRIL
     Dosage: 1 DF, BID
     Route: 048
     Dates: end: 2018
  5. COTAZYM ECS [Concomitant]
     Indication: PRODUCT USED FOR UNKNOWN INDICATION
     Route: 065
  6. METOPROLOL. [Suspect]
     Active Substance: METOPROLOL
     Indication: HYPERTENSION
     Dosage: 25 MG, QD (ONCE A DAY)
     Route: 048
     Dates: start: 20180201, end: 20180203
  7. SANDOSTATIN LAR DEPOT [Suspect]
     Active Substance: OCTREOTIDE ACETATE
     Indication: ACROMEGALY
     Dosage: 20 MG, QMO (EVERY 4 WEEKS)
     Route: 030
     Dates: start: 20160117

REACTIONS (65)
  - Pancreatolithiasis [Unknown]
  - Eyelid ptosis [Unknown]
  - Visual impairment [Unknown]
  - Swelling of eyelid [Unknown]
  - Localised infection [Unknown]
  - Dyspnoea [Unknown]
  - Dizziness [Not Recovered/Not Resolved]
  - Nausea [Unknown]
  - Productive cough [Unknown]
  - Viral infection [Unknown]
  - Fungal infection [Unknown]
  - Headache [Not Recovered/Not Resolved]
  - Abdominal pain [Unknown]
  - Injection site pain [Unknown]
  - Thirst [Unknown]
  - Hyperhidrosis [Recovering/Resolving]
  - Sleep apnoea syndrome [Unknown]
  - Pruritus [Unknown]
  - Sinus congestion [Unknown]
  - Nephrolithiasis [Unknown]
  - Lower respiratory tract infection [Unknown]
  - Neoplasm [Unknown]
  - Nail growth abnormal [Unknown]
  - Hypertension [Unknown]
  - Erythema [Recovering/Resolving]
  - Abscess oral [Unknown]
  - Nail pigmentation [Unknown]
  - Polyp [Unknown]
  - Balance disorder [Unknown]
  - Diarrhoea [Unknown]
  - Intestinal obstruction [Recovered/Resolved]
  - Onychomycosis [Not Recovered/Not Resolved]
  - Fall [Unknown]
  - Nail discolouration [Unknown]
  - Anxiety [Unknown]
  - Limb discomfort [Unknown]
  - Pain in extremity [Recovering/Resolving]
  - Hypersensitivity [Unknown]
  - Fatigue [Unknown]
  - Alopecia [Not Recovered/Not Resolved]
  - Chest pain [Unknown]
  - Onychalgia [Unknown]
  - Eyelid disorder [Unknown]
  - Stress [Unknown]
  - Abdominal adhesions [Unknown]
  - Swollen tongue [Unknown]
  - Vertigo [Unknown]
  - Dysphagia [Unknown]
  - Abdominal distension [Unknown]
  - Diabetes mellitus [Unknown]
  - Pollakiuria [Unknown]
  - Malaise [Unknown]
  - Blood pressure increased [Unknown]
  - Loss of consciousness [Unknown]
  - Onychomadesis [Unknown]
  - Urinary tract infection [Unknown]
  - Initial insomnia [Unknown]
  - Formication [Unknown]
  - Acrochordon [Unknown]
  - Melanocytic naevus [Unknown]
  - Restless legs syndrome [Unknown]
  - Peripheral swelling [Recovering/Resolving]
  - Nasopharyngitis [Unknown]
  - Vomiting [Unknown]
  - Rash pruritic [Unknown]

NARRATIVE: CASE EVENT DATE: 20160116
